FAERS Safety Report 7047010-6 (Version None)
Quarter: 2010Q4

REPORT INFORMATION
  Report Type: 
  Country: None (occurrence: None)
  Receive Date: 20101015
  Receipt Date: 20101006
  Transmission Date: 20110411
  Serious: Yes (Hospitalization)
  Sender: FDA-Public Use
  Company Number: US-WYE-H18010210

PATIENT
  Sex: Female
  Weight: 44.04 kg

DRUGS (17)
  1. RELISTOR [Suspect]
     Indication: CONSTIPATION
     Dosage: REPORTED AS ^12 MG EVERY OTHER DAY^ AND ^12 CC^
     Route: 058
     Dates: start: 20100101
  2. LYRICA [Concomitant]
     Indication: CONVULSION
     Dosage: UNSPECIFIED
     Route: 065
  3. DURAGESIC-100 [Concomitant]
     Dosage: UNSPECIFIED
     Route: 065
  4. NORCO [Concomitant]
     Dosage: UNSPECIFIED
     Route: 065
  5. SOMA [Concomitant]
     Dosage: UNSPECIFIED
     Route: 065
  6. CLONAZEPAM [Concomitant]
     Dosage: UNSPECIFIED
     Route: 065
  7. CYMBALTA [Concomitant]
     Dosage: UNSPECIFIED
     Route: 065
  8. LUNESTA [Concomitant]
     Dosage: UNSPECIFIED
     Route: 065
  9. ORPHENADRINE CITRATE [Concomitant]
     Dosage: UNSPECIFIED DOSAGE, TAKEN AS NEEDED
     Route: 061
  10. METHYLPREDNISOLONE [Concomitant]
     Dosage: 4 MG AS NEEDED
     Route: 065
  11. DAYPRO [Concomitant]
     Dosage: DOSAGE UNSPECIFIED, TAKEN AS NEEDED
     Route: 065
  12. L-METHYLFOLATE [Concomitant]
     Dosage: DOSAGE UNSPECIFIED, TAKEN AS NEEDED
     Route: 065
  13. CALCIUM [Concomitant]
     Dosage: UNSPECIFIED
     Route: 065
  14. IMITREX [Concomitant]
     Dosage: UNSPECIFIED DOSAGE, TAKEN AS NEEDED
     Route: 065
  15. MAXALT [Concomitant]
     Dosage: UNSPECIFIED DOSAGE, TAKEN AS NEEDED
     Route: 065
  16. PROMETHAZINE [Concomitant]
     Dosage: UNSPECIFIED DOSAGE, TAKEN AS NEEDED
     Route: 065
  17. TOPAMAX [Concomitant]
     Indication: CONVULSION
     Dosage: UNSPECIFIED
     Route: 065

REACTIONS (5)
  - DRUG DISPENSING ERROR [None]
  - INFECTION [None]
  - NEPHROLITHIASIS [None]
  - THERAPEUTIC RESPONSE UNEXPECTED [None]
  - UNDERDOSE [None]
